FAERS Safety Report 24406114 (Version 1)
Quarter: 2024Q4

REPORT INFORMATION
  Report Type: Spontaneous
  Country: FR (occurrence: FR)
  Receive Date: 20241007
  Receipt Date: 20241007
  Transmission Date: 20250115
  Serious: Yes (Other)
  Sender: FRESENIUS KABI
  Company Number: FR-GLAXOSMITHKLINE-FR2024GSK109612

PATIENT
  Age: 75 Year
  Sex: Female

DRUGS (11)
  1. PACLITAXEL [Suspect]
     Active Substance: PACLITAXEL
     Indication: Endometrial cancer recurrent
     Dosage: 175 MILLIGRAM/SQ. METER
     Route: 065
  2. PACLITAXEL [Suspect]
     Active Substance: PACLITAXEL
     Indication: Neoplasm
  3. CARBOPLATIN [Suspect]
     Active Substance: CARBOPLATIN
     Indication: Neoplasm
     Dosage: UNK (5 MG/ML/MIN)
     Route: 065
  4. CARBOPLATIN [Suspect]
     Active Substance: CARBOPLATIN
     Indication: Endometrial cancer
  5. DOSTARLIMAB [Suspect]
     Active Substance: DOSTARLIMAB
     Indication: Neoplasm
     Dosage: 500 MILLIGRAM?FORM OF ADMIN.: SOLUTION FOR INFUSION
     Route: 065
  6. DOSTARLIMAB [Suspect]
     Active Substance: DOSTARLIMAB
     Indication: Endometrial cancer recurrent
     Dosage: 600 MILLIGRAM?FORM OF ADMIN.: SOLUTION FOR INFUSION
     Route: 065
     Dates: start: 20240130
  7. DOSTARLIMAB [Suspect]
     Active Substance: DOSTARLIMAB
     Dosage: 500 MILLIGRAM?FORM OF ADMIN.: SOLUTION FOR INFUSION
     Route: 065
     Dates: start: 20240423
  8. DOSTARLIMAB [Suspect]
     Active Substance: DOSTARLIMAB
     Dosage: 500 MILLIGRAM?FORM OF ADMIN.: SOLUTION FOR INFUSION
     Route: 065
     Dates: start: 20240312
  9. DOSTARLIMAB [Suspect]
     Active Substance: DOSTARLIMAB
     Dosage: 500 MILLIGRAM?FORM OF ADMIN.: SOLUTION FOR INFUSION
     Route: 065
     Dates: start: 20240402
  10. DOSTARLIMAB [Suspect]
     Active Substance: DOSTARLIMAB
     Dosage: 500 MILLIGRAM?FORM OF ADMIN.: SOLUTION FOR INFUSION
     Route: 065
     Dates: start: 20240222
  11. DOSTARLIMAB [Suspect]
     Active Substance: DOSTARLIMAB
     Dosage: 500 MILLIGRAM?FORM OF ADMIN.: SOLUTION FOR INFUSION
     Route: 065
     Dates: start: 20240627, end: 20240718

REACTIONS (3)
  - Hypothyroidism [Unknown]
  - Rash [Unknown]
  - Palmar-plantar erythrodysaesthesia syndrome [Unknown]

NARRATIVE: CASE EVENT DATE: 20240402
